FAERS Safety Report 20793889 (Version 1)
Quarter: 2022Q2

REPORT INFORMATION
  Report Type: Report from Study
  Country: UA (occurrence: UA)
  Receive Date: 20220506
  Receipt Date: 20220506
  Transmission Date: 20220721
  Serious: Yes (Hospitalization, Other)
  Sender: FDA-Public Use
  Company Number: UA-CELGENE-UKR-20211005096

PATIENT
  Sex: Male
  Weight: 78 kg

DRUGS (30)
  1. Methyl prednizolone [Concomitant]
     Indication: Colitis ulcerative
     Route: 048
     Dates: start: 20170901, end: 20180408
  2. Methyl prednizolone [Concomitant]
     Route: 048
     Dates: start: 20180409, end: 20180507
  3. Methyl prednizolone [Concomitant]
     Route: 048
     Dates: start: 20180508, end: 20180529
  4. Methyl prednizolone [Concomitant]
     Route: 048
     Dates: start: 20180530, end: 20180626
  5. SULFASALAZINE [Concomitant]
     Active Substance: SULFASALAZINE
     Indication: Colitis ulcerative
     Dosage: .125 GRAM
     Route: 048
     Dates: start: 20170901, end: 20180731
  6. Lioton gel [Concomitant]
     Indication: Thrombophlebitis
     Route: 061
     Dates: start: 20180118, end: 20180425
  7. DIOSMIN\HESPERIDIN [Concomitant]
     Active Substance: DIOSMIN\HESPERIDIN
     Indication: Thrombophlebitis
     Dosage: 1 CAPSULE
     Route: 048
     Dates: start: 20180118, end: 20180425
  8. DIOSMIN\HESPERIDIN [Concomitant]
     Active Substance: DIOSMIN\HESPERIDIN
     Indication: Oedema
     Route: 048
     Dates: start: 20180901
  9. METAMIZOLE SODIUM\TRIACETONAMINE TOSILATE [Concomitant]
     Active Substance: METAMIZOLE SODIUM\TRIACETONAMINE TOSILATE
     Indication: Headache
     Dosage: FREQUENCY TEXT: AS NEEDED?1 TABLET
     Route: 048
     Dates: start: 20180320, end: 20180501
  10. MAGNESIUM ASPARTATE\POTASSIUM ASPARTATE [Concomitant]
     Active Substance: MAGNESIUM ASPARTATE\POTASSIUM ASPARTATE
     Indication: Glucocorticoids abnormal
     Dosage: 1 TABLET
     Route: 048
     Dates: start: 20180508, end: 20180529
  11. CETIRIZINE HYDROCHLORIDE [Concomitant]
     Active Substance: CETIRIZINE HYDROCHLORIDE
     Indication: Glucocorticoids abnormal
     Route: 048
     Dates: start: 20180508, end: 20180529
  12. CETIRIZINE HYDROCHLORIDE [Concomitant]
     Active Substance: CETIRIZINE HYDROCHLORIDE
     Indication: Pruritus
  13. Salofalk [Concomitant]
     Indication: Hepatitis
     Dosage: 3 GRAM
     Route: 048
     Dates: start: 20180801
  14. Salofalk [Concomitant]
     Indication: Colitis ulcerative
  15. REMAXOL [Concomitant]
     Indication: Hepatitis
     Route: 042
     Dates: start: 20181031, end: 20181102
  16. Silibor max [Concomitant]
     Indication: Hepatitis
     Dosage: 280 MILLIGRAM
     Route: 048
     Dates: start: 20181030, end: 20181118
  17. Silibor max [Concomitant]
     Route: 048
     Dates: start: 20190317, end: 20190405
  18. URSODIOL [Concomitant]
     Active Substance: URSODIOL
     Indication: Hepatitis
     Dosage: 750 MILLIGRAM
     Route: 048
     Dates: start: 20181030, end: 20181207
  19. URSODIOL [Concomitant]
     Active Substance: URSODIOL
     Indication: Hepatitis cholestatic
     Route: 048
     Dates: start: 20190317, end: 20190420
  20. URSODIOL [Concomitant]
     Active Substance: URSODIOL
     Route: 048
     Dates: start: 20190812, end: 20190812
  21. URSODIOL [Concomitant]
     Active Substance: URSODIOL
     Route: 048
     Dates: start: 20191105, end: 20191202
  22. URSODIOL [Concomitant]
     Active Substance: URSODIOL
     Route: 048
     Dates: start: 20200607, end: 20200706
  23. URSODIOL [Concomitant]
     Active Substance: URSODIOL
     Route: 048
     Dates: start: 20201025, end: 20201119
  24. URSODIOL [Concomitant]
     Active Substance: URSODIOL
     Route: 048
     Dates: start: 20210312, end: 20210411
  25. FENPIVERINIUM BROMIDE\METAMIZOLE SODIUM\PITOFENONE HYDROCHLORIDE [Concomitant]
     Active Substance: FENPIVERINIUM BROMIDE\METAMIZOLE SODIUM\PITOFENONE HYDROCHLORIDE
     Indication: Colonoscopy
     Dosage: 5 MILLIGRAM
     Route: 030
     Dates: start: 20181217, end: 20181217
  26. AFLUBIN [Concomitant]
     Indication: Nasopharyngitis
     Dosage: 30 DROPS
     Route: 030
     Dates: start: 20190129, end: 20190202
  27. AFLUBIN [Concomitant]
     Route: 048
     Dates: start: 20190112, end: 20190117
  28. AFLUBIN [Concomitant]
     Route: 048
     Dates: start: 20210315, end: 20210316
  29. PANTOPRAZOLE [Concomitant]
     Active Substance: PANTOPRAZOLE
     Indication: Dyspepsia
     Dosage: 40 MILLIGRAM
     Route: 048
     Dates: start: 20200115, end: 20200128
  30. PANTOPRAZOLE [Concomitant]
     Active Substance: PANTOPRAZOLE
     Indication: Optic neuritis
     Dosage: 40 MILLIGRAM
     Route: 048
     Dates: start: 20200430, end: 20200513

REACTIONS (2)
  - COVID-19 [Recovered/Resolved with Sequelae]
  - Hepatitis cholestatic [Recovering/Resolving]

NARRATIVE: CASE EVENT DATE: 20180919
